FAERS Safety Report 4470406-3 (Version None)
Quarter: 2004Q3

REPORT INFORMATION
  Report Type: 
  Country: None (occurrence: None)
  Receive Date: 20040910
  Receipt Date: 20040527
  Transmission Date: 20050211
  Serious: No
  Sender: FDA-Public Use
  Company Number: M04-341-016

PATIENT
  Age: 51 Year
  Sex: Male
  Weight: 93 kg

DRUGS (4)
  1. VELCADE [Suspect]
     Indication: MULTIPLE MYELOMA
     Dosage: 2.60 MG; 2.00 MG    :   INTRAVENOUS
     Route: 042
     Dates: start: 20031110, end: 20040115
  2. VELCADE [Suspect]
     Indication: MULTIPLE MYELOMA
     Dosage: 2.60 MG; 2.00 MG    :   INTRAVENOUS
     Route: 042
     Dates: start: 20040126, end: 20040219
  3. ZOMETA [Concomitant]
  4. OXYCODONE [Concomitant]

REACTIONS (5)
  - ABDOMINAL PAIN [None]
  - CONSTIPATION [None]
  - NAUSEA [None]
  - NEUROPATHY PERIPHERAL [None]
  - VOMITING [None]
